FAERS Safety Report 17428172 (Version 1)
Quarter: 2020Q1

REPORT INFORMATION
  Report Type: Spontaneous
  Country: FR (occurrence: FR)
  Receive Date: 20200217
  Receipt Date: 20200217
  Transmission Date: 20200409
  Serious: Yes (Hospitalization)
  Sender: FDA-Public Use
  Company Number: FR-TEVA-2020-FR-1186766

PATIENT
  Age: 71 Year
  Sex: Female
  Weight: 135 kg

DRUGS (9)
  1. AMIODARONE ARROW 200 MG, COMPRIM? S?CABLE [Suspect]
     Active Substance: AMIODARONE
     Indication: ATRIAL FIBRILLATION
     Dosage: 200 MG 1 DAYS
     Route: 048
     Dates: start: 20131011, end: 20200113
  2. PREGABALINE TEVA [Suspect]
     Active Substance: PREGABALIN
     Indication: NEURALGIA
     Dosage: 75 MG 1 DAYS
     Route: 048
     Dates: start: 20191227, end: 20200104
  3. CANDESARTAN SANDOZ [Concomitant]
     Active Substance: CANDESARTAN
     Indication: HYPERTENSION
     Dosage: 4 MG 1 DAYS
     Route: 048
     Dates: start: 20181226
  4. AMLODIPINE [Concomitant]
     Active Substance: AMLODIPINE BESYLATE
     Indication: HYPERTENSION
     Dosage: 5 MG 1 DAYS
     Route: 048
     Dates: start: 20160318
  5. PREGABALINE TEVA [Suspect]
     Active Substance: PREGABALIN
     Dosage: 150 MG 1 DAYS
     Route: 048
     Dates: start: 20200107, end: 20200113
  6. LEVETIRACETAM MYLAN [Concomitant]
     Active Substance: LEVETIRACETAM
     Indication: EPILEPSY
     Dosage: 1000 MG 1 DAYS
     Route: 048
     Dates: start: 20140107
  7. BISOCE [Suspect]
     Active Substance: BISOPROLOL
     Indication: HYPERTENSION
     Dosage: 5 MG 1 DAYS
     Route: 048
     Dates: end: 20200113
  8. PREGABALINE TEVA [Suspect]
     Active Substance: PREGABALIN
     Dosage: 50 MG 1 DAYS
     Route: 048
     Dates: start: 20150513, end: 20191226
  9. PREGABALINE TEVA [Suspect]
     Active Substance: PREGABALIN
     Dosage: 100 MG 1 DAYS
     Route: 048
     Dates: start: 20200105, end: 20200107

REACTIONS (1)
  - Bradycardia [Not Recovered/Not Resolved]

NARRATIVE: CASE EVENT DATE: 20200113
